FAERS Safety Report 24653231 (Version 1)
Quarter: 2024Q4

REPORT INFORMATION
  Report Type: Spontaneous
  Country: JP (occurrence: JP)
  Receive Date: 20241122
  Receipt Date: 20241122
  Transmission Date: 20250115
  Serious: Yes (Hospitalization)
  Sender: EISAI
  Company Number: JP-Eisai-202211599_LEN-EC_P_1

PATIENT
  Age: 59 Year
  Sex: Female

DRUGS (2)
  1. LENVATINIB [Suspect]
     Active Substance: LENVATINIB
     Indication: Endometrial cancer
     Route: 048
     Dates: start: 20221014, end: 20221028
  2. PEMBROLIZUMAB [Concomitant]
     Active Substance: PEMBROLIZUMAB
     Indication: Endometrial cancer
     Route: 041
     Dates: start: 20221014

REACTIONS (6)
  - Erythema multiforme [Recovered/Resolved]
  - Blood pressure increased [Unknown]
  - Diabetes mellitus inadequate control [Unknown]
  - Conjunctival hyperaemia [Unknown]
  - Lip erosion [Unknown]
  - Vulvar erosion [Unknown]

NARRATIVE: CASE EVENT DATE: 20221001
